FAERS Safety Report 11140943 (Version 1)
Quarter: 2015Q2

REPORT INFORMATION
  Report Type: Spontaneous
  Country: US (occurrence: None)
  Receive Date: 20150522
  Receipt Date: 20150522
  Transmission Date: 20150821
  Serious: Yes (Other)
  Sender: FDA-Public Use
  Company Number: PR-AE15-000375

PATIENT
  Sex: Male

DRUGS (1)
  1. SOMINEX [Suspect]
     Active Substance: DIPHENHYDRAMINE HYDROCHLORIDE
     Indication: SLEEP DISORDER
     Route: 048

REACTIONS (1)
  - Drug dependence [None]
